FAERS Safety Report 11695728 (Version 1)
Quarter: 2015Q4

REPORT INFORMATION
  Report Type: Spontaneous
  Country: US (occurrence: None)
  Receive Date: 20151103
  Receipt Date: 20151103
  Transmission Date: 20160304
  Serious: No
  Sender: FDA-Public Use
  Company Number: None

PATIENT
  Age: 49 Year
  Sex: Male
  Weight: 122.47 kg

DRUGS (1)
  1. NOVOLOG [Suspect]
     Active Substance: INSULIN ASPART
     Indication: INJECTION

REACTIONS (4)
  - Device malfunction [None]
  - Device physical property issue [None]
  - Device difficult to use [None]
  - Incorrect dose administered by device [None]

NARRATIVE: CASE EVENT DATE: 20151101
